FAERS Safety Report 13162760 (Version 1)
Quarter: 2017Q1

REPORT INFORMATION
  Report Type: Spontaneous
  Country: US (occurrence: US)
  Receive Date: 20170128
  Receipt Date: 20170128
  Transmission Date: 20170428
  Serious: Yes (Life-Threatening, Other)
  Sender: FDA-Public Use
  Company Number: None

PATIENT
  Age: 57 Year
  Sex: Female
  Weight: 72 kg

DRUGS (4)
  1. STIOLTO RESPIMAT [Suspect]
     Active Substance: OLODATEROL HYDROCHLORIDE\TIOTROPIUM BROMIDE MONOHYDRATE
     Indication: CHRONIC OBSTRUCTIVE PULMONARY DISEASE
     Dosage: ?          OTHER STRENGTH:NS 3.124 MCG TIOTR;QUANTITY:2 PUFF(S);?
     Route: 055
     Dates: start: 20160401, end: 20160521
  2. LOSARTAN. [Concomitant]
     Active Substance: LOSARTAN
  3. ADVIL [Concomitant]
     Active Substance: IBUPROFEN
  4. IMITREX [Concomitant]
     Active Substance: SUMATRIPTAN SUCCINATE

REACTIONS (3)
  - Increased upper airway secretion [None]
  - Rhinorrhoea [None]
  - Condition aggravated [None]

NARRATIVE: CASE EVENT DATE: 20160410
